FAERS Safety Report 20136303 (Version 1)
Quarter: 2021Q4

REPORT INFORMATION
  Report Type: Spontaneous
  Country: DE (occurrence: DE)
  Receive Date: 20211201
  Receipt Date: 20211201
  Transmission Date: 20220303
  Serious: Yes (Other)
  Sender: FDA-Public Use
  Company Number: DE-ORGANON-O2110DEU002807

PATIENT
  Age: 28 Year
  Sex: Female
  Weight: 140 kg

DRUGS (1)
  1. ETONOGESTREL [Suspect]
     Active Substance: ETONOGESTREL
     Indication: Contraception
     Dosage: 1 IMPLANT IN LEFT UPPER ARM
     Route: 059
     Dates: start: 20180717

REACTIONS (6)
  - Gastric bypass [Unknown]
  - Weight increased [Unknown]
  - Device placement issue [Not Recovered/Not Resolved]
  - Complication associated with device [Recovered/Resolved]
  - Device issue [Not Recovered/Not Resolved]
  - Incorrect product administration duration [Unknown]

NARRATIVE: CASE EVENT DATE: 20180717
